FAERS Safety Report 8865918 (Version 1)
Quarter: 2012Q4

REPORT INFORMATION
  Report Type: 
  Country: US (occurrence: US)
  Receive Date: 20121025
  Receipt Date: 20121025
  Transmission Date: 20130627
  Serious: No
  Sender: FDA-Public Use
  Company Number: US-ABBOTT-12P-163-0933850-00

PATIENT
  Sex: Female

DRUGS (4)
  1. LUPRON DEPOT [Suspect]
     Indication: INTENTIONAL SELF-INJURY
  2. LUPRON DEPOT [Suspect]
     Indication: AGGRESSION
  3. LUPRON DEPOT [Suspect]
     Indication: ABNORMAL BEHAVIOUR
  4. LUPRON DEPOT [Suspect]
     Indication: DYSMENORRHOEA

REACTIONS (1)
  - Off label use [Not Recovered/Not Resolved]
